FAERS Safety Report 5220618-6 (Version None)
Quarter: 2007Q1

REPORT INFORMATION
  Report Type: 
  Country: None (occurrence: None)
  Receive Date: 20070126
  Receipt Date: 20070116
  Transmission Date: 20070707
  Serious: Yes (Hospitalization)
  Sender: FDA-Public Use
  Company Number: PHBS2007JP01171

PATIENT
  Age: 77 Year
  Sex: Male
  Weight: 64 kg

DRUGS (10)
  1. ACECOL [Suspect]
     Indication: HYPERTENSION
     Dosage: 4 MG/DAY
     Route: 048
     Dates: start: 20030301, end: 20050414
  2. ACECOL [Suspect]
     Dosage: 4 MG/DAY
     Route: 048
     Dates: start: 20050423, end: 20050707
  3. ALDACTONE [Concomitant]
     Indication: OEDEMA
     Dosage: 25 MG/DAY
     Route: 048
     Dates: start: 20030301
  4. ZANTAC [Concomitant]
     Indication: GASTRITIS
     Dosage: 150 MG, UNK
     Route: 048
     Dates: start: 20030301, end: 20050602
  5. LOCHOL [Concomitant]
     Indication: HYPERLIPIDAEMIA
     Dosage: 40 MG, UNK
     Route: 048
     Dates: start: 20030301, end: 20050428
  6. HERBESSER [Concomitant]
     Indication: HYPERTENSION
     Dosage: 100 MG, UNK
     Route: 048
     Dates: start: 20031101
  7. NORVASC [Concomitant]
     Indication: HYPERTENSION
     Dosage: 2.5 MG, UNK
     Dates: start: 20040701
  8. NITRODERM [Concomitant]
     Indication: ANGINA PECTORIS
     Dosage: 25 MG/DAY
     Route: 061
     Dates: start: 20030301
  9. DIOVAN [Suspect]
     Indication: HYPERTENSION
     Dosage: 120 MG/DAY
     Route: 048
     Dates: start: 20030301, end: 20050414
  10. DIOVAN [Suspect]
     Dosage: 120 MG/DAY
     Route: 048
     Dates: start: 20050423, end: 20050811

REACTIONS (12)
  - ABDOMINAL DISTENSION [None]
  - ABDOMINAL PAIN [None]
  - BLOOD CREATININE [None]
  - BLOOD UREA INCREASED [None]
  - DIARRHOEA [None]
  - ILEUS [None]
  - MUCOUS STOOLS [None]
  - NAUSEA [None]
  - OEDEMA MUCOSAL [None]
  - SIGMOIDECTOMY [None]
  - VOLVULUS [None]
  - VOMITING [None]
